FAERS Safety Report 6876977-1 (Version None)
Quarter: 2010Q3

REPORT INFORMATION
  Report Type: 
  Country: None (occurrence: None)
  Receive Date: 20100727
  Receipt Date: 20100713
  Transmission Date: 20110219
  Serious: Yes (Hospitalization, Other)
  Sender: FDA-Public Use
  Company Number: DE-ELI_LILLY_AND_COMPANY-DE201007002863

PATIENT
  Age: 30 Year
  Sex: Female

DRUGS (4)
  1. DULOXETINE HYDROCHLORIDE [Suspect]
     Dosage: UNK, UNKNOWN
     Route: 065
  2. DULOXETINE HYDROCHLORIDE [Suspect]
     Dosage: 1680 MG, OTHER (ONCE)
     Route: 048
  3. PIPAMPERONE [Concomitant]
     Dosage: 380 MG, OTHER (ONCE)
     Route: 048
  4. AMITRIPTYLINE HYDROCHLORIDE [Concomitant]
     Dosage: 250 MG, OTHER (ONCE)
     Route: 048

REACTIONS (5)
  - CONVULSION [None]
  - DELIRIUM [None]
  - INTENTIONAL OVERDOSE [None]
  - LOSS OF CONSCIOUSNESS [None]
  - SUICIDE ATTEMPT [None]
